FAERS Safety Report 13895403 (Version 1)
Quarter: 2017Q3

REPORT INFORMATION
  Report Type: Spontaneous
  Country: US (occurrence: None)
  Receive Date: 20170817
  Receipt Date: 20170817
  Transmission Date: 20171127
  Serious: Yes (Hospitalization)
  Sender: FDA-Public Use
  Company Number: None

PATIENT
  Age: 63 Year
  Sex: Female
  Weight: 73.9 kg

DRUGS (1)
  1. ASPIRIN. [Suspect]
     Active Substance: ASPIRIN
     Dates: end: 20170811

REACTIONS (10)
  - Pain in extremity [None]
  - Vomiting [None]
  - Streptococcus test positive [None]
  - Feeling hot [None]
  - Oedema [None]
  - Pyrexia [None]
  - Chills [None]
  - Erythema [None]
  - Tenderness [None]
  - Nausea [None]

NARRATIVE: CASE EVENT DATE: 20170727
